FAERS Safety Report 13559980 (Version 1)
Quarter: 2017Q2

REPORT INFORMATION
  Report Type: Spontaneous
  Country: FR (occurrence: FR)
  Receive Date: 20170518
  Receipt Date: 20170518
  Transmission Date: 20170830
  Serious: Yes (Hospitalization)
  Sender: FDA-Public Use
  Company Number: FR-BRISTOL-MYERS SQUIBB COMPANY-BMS-2017-041746

PATIENT
  Age: 87 Year
  Sex: Female

DRUGS (1)
  1. ELIQUIS [Suspect]
     Active Substance: APIXABAN
     Indication: PRODUCT USED FOR UNKNOWN INDICATION
     Dosage: 2.5 MG, BID
     Route: 048
     Dates: end: 20170419

REACTIONS (7)
  - Surgery [Unknown]
  - Malaise [Unknown]
  - Laceration [Unknown]
  - Fall [Unknown]
  - Wound haemorrhage [Unknown]
  - Epistaxis [Unknown]
  - Head injury [Unknown]

NARRATIVE: CASE EVENT DATE: 20170419
